FAERS Safety Report 21723797 (Version 1)
Quarter: 2022Q4

REPORT INFORMATION
  Report Type: Spontaneous
  Country: US (occurrence: None)
  Receive Date: 20221213
  Receipt Date: 20221213
  Transmission Date: 20230112
  Serious: Yes (Disabling, Other)
  Sender: FDA-Public Use
  Company Number: None

PATIENT
  Age: 39 Year
  Sex: Female
  Weight: 65.25 kg

DRUGS (3)
  1. MIRTAZAPINE [Suspect]
     Active Substance: MIRTAZAPINE
     Indication: Product used for unknown indication
     Route: 048
  2. Ammoxicilian [Concomitant]
  3. Flouroquinelones [Concomitant]

REACTIONS (14)
  - Headache [None]
  - Migraine [None]
  - Dizziness [None]
  - Nausea [None]
  - Sleep disorder [None]
  - Head discomfort [None]
  - Myalgia [None]
  - Muscular weakness [None]
  - Diarrhoea [None]
  - Fatigue [None]
  - Anxiety [None]
  - Depression [None]
  - Withdrawal syndrome [None]
  - Quality of life decreased [None]

NARRATIVE: CASE EVENT DATE: 20191001
